FAERS Safety Report 4619369-8 (Version None)
Quarter: 2005Q2

REPORT INFORMATION
  Report Type: 
  Country: None (occurrence: None)
  Receive Date: 20050325
  Receipt Date: 20041216
  Transmission Date: 20051028
  Serious: Yes (Other)
  Sender: FDA-Public Use
  Company Number: 0204005

PATIENT
  Age: 62 Year
  Sex: Female
  Weight: 81.6475 kg

DRUGS (3)
  1. DEPODUR [Suspect]
     Indication: POST PROCEDURAL PAIN
     Dosage: (10 MG, ONCE), EPIDURAL
     Route: 008
     Dates: start: 20041215, end: 20041215
  2. MORPHINE [Concomitant]
  3. UNSPECIFIED HOME MEDICATIONS [Concomitant]

REACTIONS (1)
  - RESPIRATORY DEPRESSION [None]
